FAERS Safety Report 24388369 (Version 1)
Quarter: 2024Q4

REPORT INFORMATION
  Report Type: Spontaneous
  Country: US (occurrence: None)
  Receive Date: 20241002
  Receipt Date: 20241002
  Transmission Date: 20250115
  Serious: Yes (Death)
  Sender: Public
  Company Number: None

PATIENT
  Sex: Female
  Weight: 74.8 kg

DRUGS (7)
  1. PEMBROLIZUMAB [Suspect]
     Active Substance: PEMBROLIZUMAB
  2. VANCOMYCIN [Concomitant]
  3. ZOSYN [Concomitant]
     Active Substance: PIPERACILLIN SODIUM\TAZOBACTAM SODIUM
  4. ASPARTATE AMINOTRANSFERASE [Concomitant]
  5. Alkaline Phosphatase [Concomitant]
  6. Alkaline Phosphatase [Concomitant]
  7. Alanine Aminotransferase [Concomitant]

REACTIONS (8)
  - Cardiac arrest [None]
  - Rib fracture [None]
  - Hepatic lesion [None]
  - Acute kidney injury [None]
  - Dialysis [None]
  - Lung cancer metastatic [None]
  - Sepsis [None]
  - Cholecystitis acute [None]

NARRATIVE: CASE EVENT DATE: 20211121
